FAERS Safety Report 4425549-7 (Version None)
Quarter: 2004Q3

REPORT INFORMATION
  Report Type: 
  Country: None (occurrence: None)
  Receive Date: 20040813
  Receipt Date: 20040729
  Transmission Date: 20050211
  Serious: Yes (Other)
  Sender: FDA-Public Use
  Company Number: GB-AMGEN-US086971

PATIENT
  Sex: Female

DRUGS (3)
  1. ENBREL [Suspect]
     Indication: RHEUMATOID ARTHRITIS
     Route: 058
     Dates: start: 20030522
  2. DICLOFENAC [Concomitant]
     Dates: start: 20010101
  3. DESOGESTREL AND ETHINYL ESTRADIOL [Concomitant]
     Dates: start: 19930501

REACTIONS (4)
  - DIZZINESS [None]
  - HEAD INJURY [None]
  - SYNCOPE [None]
  - VISION BLURRED [None]
